FAERS Safety Report 7075085-7 (Version None)
Quarter: 2010Q4

REPORT INFORMATION
  Report Type: 
  Country: None (occurrence: None)
  Receive Date: 20101029
  Receipt Date: 20100407
  Transmission Date: 20110411
  Serious: No
  Sender: FDA-Public Use
  Company Number: US-WYE-H14336510

PATIENT
  Age: 77 Year
  Sex: Female
  Weight: 63.56 kg

DRUGS (1)
  1. ADVIL PM [Suspect]
     Indication: BURSITIS
     Dosage: 2 CAPLETS PER DAY
     Route: 048
     Dates: start: 20100322

REACTIONS (1)
  - DRUG EFFECT DECREASED [None]
